FAERS Safety Report 8052378-8 (Version None)
Quarter: 2012Q1

REPORT INFORMATION
  Report Type: 
  Country: None (occurrence: None)
  Receive Date: 20120118
  Receipt Date: 20120112
  Transmission Date: 20120608
  Serious: Yes (Hospitalization, Other)
  Sender: FDA-Public Use
  Company Number: US-CELGENEUS-163-21880-11123877

PATIENT
  Sex: Female
  Weight: 59.02 kg

DRUGS (17)
  1. GABAPENTIN [Concomitant]
     Dosage: 300 MILLIGRAM
     Route: 065
  2. REGLAN [Concomitant]
     Dosage: 10 MILLIGRAM
     Route: 065
  3. CHOLESTYRAMINE [Concomitant]
     Dosage: 1 PACKET
     Route: 065
  4. METHADONE HCL [Concomitant]
     Dosage: 3
     Route: 065
  5. MS04 [Concomitant]
     Dosage: 30 MILLIGRAM
     Route: 065
  6. REVLIMID [Suspect]
     Dosage: 25 MILLIGRAM
     Route: 048
     Dates: start: 20110901
  7. COMPAZINE [Concomitant]
     Route: 065
  8. ATIVAN [Concomitant]
     Dosage: 1 MILLIGRAM
     Route: 065
  9. DRONABINOL [Concomitant]
     Dosage: 10 MILLIGRAM
     Route: 065
  10. MIRTAZAPINE [Concomitant]
     Route: 065
  11. XIFAXAN [Concomitant]
     Route: 065
  12. REVLIMID [Suspect]
     Dosage: 25 MILLIGRAM
     Route: 048
     Dates: start: 20111001
  13. MVD [Concomitant]
     Route: 065
  14. OMEPRAZOLE [Concomitant]
     Dosage: 20 MILLIGRAM
     Route: 065
  15. ZOFRAN [Concomitant]
     Dosage: 8 MILLIGRAM
     Route: 065
  16. REVLIMID [Suspect]
     Indication: MULTIPLE MYELOMA
     Dosage: 25 MILLIGRAM
     Route: 048
     Dates: start: 20110601
  17. POTASSIUM CHLORIDE [Concomitant]
     Route: 065

REACTIONS (2)
  - DIARRHOEA [None]
  - INCONTINENCE [None]
